FAERS Safety Report 24109356 (Version 2)
Quarter: 2024Q3

REPORT INFORMATION
  Report Type: Spontaneous
  Country: FR (occurrence: FR)
  Receive Date: 20240718
  Receipt Date: 20240724
  Transmission Date: 20241017
  Serious: Yes (Hospitalization, Other)
  Sender: AUROBINDO
  Company Number: FR-AFSSAPS-MP20191337

PATIENT
  Age: 68 Year
  Sex: Male

DRUGS (17)
  1. LENALIDOMIDE [Suspect]
     Active Substance: LENALIDOMIDE
     Indication: Plasma cell myeloma
     Dosage: 20 MILLIGRAM (4 WEEK CYCLE)
     Route: 065
     Dates: start: 201909
  2. LENALIDOMIDE [Suspect]
     Active Substance: LENALIDOMIDE
     Dosage: 25 MILLIGRAM
     Route: 065
     Dates: start: 201909
  3. DEXAMETHASONE [Suspect]
     Active Substance: DEXAMETHASONE
     Indication: Plasma cell myeloma recurrent
     Dosage: UNK
     Route: 065
     Dates: start: 201909
  4. BENSERAZIDE HYDROCHLORIDE\LEVODOPA [Interacting]
     Active Substance: BENSERAZIDE HYDROCHLORIDE\LEVODOPA
     Indication: Parkinson^s disease
     Dosage: 1500 MILLIGRAM, ONCE A DAY(500 MILLIGRAM, TID)
     Route: 048
  5. BENSERAZIDE HYDROCHLORIDE\LEVODOPA [Interacting]
     Active Substance: BENSERAZIDE HYDROCHLORIDE\LEVODOPA
     Dosage: 1250 MILLIGRAM, ONCE A DAY(1250 MILLIGRAM, QD)
     Route: 048
  6. NINLARO [Interacting]
     Active Substance: IXAZOMIB CITRATE
     Indication: Plasma cell myeloma recurrent
     Dosage: 4 MILLIGRAM(4 MILLIGRAM)
     Route: 048
     Dates: start: 20190901
  7. VALACYCLOVIR HYDROCHLORIDE [Concomitant]
     Active Substance: VALACYCLOVIR HYDROCHLORIDE
     Indication: Product used for unknown indication
     Dosage: 1000 MILLIGRAM, ONCE A DAY(1000 MILLIGRAM, QD)
     Route: 048
  8. KARDEGIC [Concomitant]
     Active Substance: ASPIRIN DL-LYSINE
     Indication: Product used for unknown indication
     Dosage: 75 MILLIGRAM, ONCE A DAY(75 MILLIGRAM, QD)
     Route: 048
  9. ESOMEPRAZOLE [Concomitant]
     Active Substance: ESOMEPRAZOLE
     Indication: Product used for unknown indication
     Dosage: 20 MILLIGRAM, ONCE A DAY(20 MILLIGRAM, QD)
     Route: 048
  10. REVLIMID [Concomitant]
     Active Substance: LENALIDOMIDE
     Indication: Plasma cell myeloma
     Dosage: UNK
     Route: 048
     Dates: start: 201801
  11. Transipeg [Concomitant]
     Indication: Product used for unknown indication
     Dosage: UNK, ONCE A DAY
     Route: 048
  12. CLOZAPINE [Concomitant]
     Active Substance: CLOZAPINE
     Indication: Product used for unknown indication
     Dosage: 25 MILLIGRAM, ONCE A DAY(25 MILLIGRAM, QD)
     Route: 048
  13. LEUCOVORIN CALCIUM [Concomitant]
     Active Substance: LEUCOVORIN CALCIUM
     Indication: Product used for unknown indication
     Dosage: 15 MILLIGRAM, EVERY WEEK(15 MILLIGRAM, 1/WEEK)
     Route: 048
  14. BACTRIM [Concomitant]
     Active Substance: SULFAMETHOXAZOLE\TRIMETHOPRIM
     Indication: Product used for unknown indication
     Dosage: UNK
     Route: 048
  15. DEXAMETHASONE [Concomitant]
     Active Substance: DEXAMETHASONE
     Indication: Plasma cell myeloma
     Dosage: 20 MILLIGRAM, EVERY WEEK(20 MILLIGRAM, 1/WEEK)
     Route: 048
     Dates: start: 201801
  16. PRAZEPAM [Concomitant]
     Active Substance: PRAZEPAM
     Indication: Product used for unknown indication
     Dosage: 30 MILLIGRAM, ONCE A DAY(30 MILLIGRAM, QD)
     Route: 048
  17. IXAZOMIB [Concomitant]
     Active Substance: IXAZOMIB
     Indication: Plasma cell myeloma
     Dosage: 4 MILLIGRAM, CYCLICAL (4 WEEK CYCLE)
     Route: 065

REACTIONS (7)
  - Parkinson^s disease [Recovering/Resolving]
  - Bronchitis [Unknown]
  - Plasma cell myeloma [Unknown]
  - Condition aggravated [Unknown]
  - Drug interaction [Not Recovered/Not Resolved]
  - Therapeutic product effect decreased [Not Recovered/Not Resolved]
  - Drug ineffective [Unknown]

NARRATIVE: CASE EVENT DATE: 20190924
